FAERS Safety Report 5365809-9 (Version None)
Quarter: 2007Q2

REPORT INFORMATION
  Report Type: 
  Country: None (occurrence: None)
  Receive Date: 20070619
  Receipt Date: 20070611
  Transmission Date: 20071010
  Serious: Yes (Hospitalization, Other)
  Sender: FDA-Public Use
  Company Number: 163-20785-07060591

PATIENT
  Age: 66 Year
  Sex: Male

DRUGS (22)
  1. THALOMID [Suspect]
     Indication: MULTIPLE MYELOMA
     Dosage: SEE IMAGE; ORAL
     Route: 048
     Dates: start: 20070326, end: 20070519
  2. THALOMID [Suspect]
     Indication: MULTIPLE MYELOMA
     Dosage: SEE IMAGE; ORAL
     Route: 048
     Dates: start: 20070523, end: 20070526
  3. VELCADE [Suspect]
     Indication: MULTIPLE MYELOMA
     Dosage: 2 MG, DAYS 104, NOT GIVEN ON DAYS 8 AND 11; INTRAVENOUS
     Route: 042
     Dates: start: 20070523, end: 20070526
  4. DEXAMETHASONE (DEXAMETHASONE) (4 MILLIGRAM) [Suspect]
     Dosage: 40 MG, DAILY ON DAYS 1-4
     Dates: start: 20070523
  5. CISPLATIN [Suspect]
     Indication: MULTIPLE MYELOMA
  6. ADRIAMYCIN PFS [Suspect]
     Indication: MULTIPLE MYELOMA
  7. CYCLOPHOSPHAMIDE [Suspect]
     Indication: MULTIPLE MYELOMA
  8. ETOPOSIDE [Suspect]
     Indication: MULTIPLE MYELOMA
  9. LEVAQUIN [Concomitant]
  10. DIFLUCAN [Concomitant]
  11. ACYCLOVIR (ACICLOVIR) (TABLETS) [Concomitant]
  12. LEVOTHYROXINE SODIUM (LEVOTHYROXINE SODIUM) (TABLETS) [Concomitant]
  13. COMBIVENT [Concomitant]
  14. VYTORIN (INEGY) (TABLETS) [Concomitant]
  15. TOPROL XL (METOPROLOL SUCCINATE) (TABLETS) [Concomitant]
  16. MAGNESIUM OXIDE (MAGNESIUM OXIDE) (TABLETS) [Concomitant]
  17. PROCRIT (ERYTHROPOIETIN) (SOLUTION) [Concomitant]
  18. AVANDAMET [Concomitant]
  19. MULTIVITAMINS (MULTIVITAMINS) (TABLETS) [Concomitant]
  20. LOVENOX [Concomitant]
  21. NEUPOGEN (FILGRASTIM) (SOLUTION) [Concomitant]
  22. FLUCONAZOLE [Concomitant]

REACTIONS (18)
  - ABDOMINAL PAIN [None]
  - ABSCESS [None]
  - BLADDER DISORDER [None]
  - BLOOD UREA DECREASED [None]
  - BRONCHITIS [None]
  - COLITIS [None]
  - DIARRHOEA [None]
  - DIVERTICULAR PERFORATION [None]
  - DIVERTICULITIS [None]
  - HAEMOGLOBIN DECREASED [None]
  - LABORATORY TEST ABNORMAL [None]
  - NAUSEA [None]
  - PLATELET COUNT DECREASED [None]
  - PNEUMONIA [None]
  - PULMONARY EMBOLISM [None]
  - SEPSIS [None]
  - TRANSPLANT [None]
  - WHITE BLOOD CELL COUNT DECREASED [None]
